FAERS Safety Report 15653537 (Version 5)
Quarter: 2023Q2

REPORT INFORMATION
  Report Type: Other
  Country: DE (occurrence: DE)
  Receive Date: 20181124
  Receipt Date: 20230501
  Transmission Date: 20230722
  Serious: Yes (Death, Life-Threatening, Hospitalization, Other)
  Sender: FDA-Public Use
  Company Number: None

PATIENT
  Age: 27 Year
  Sex: Male

DRUGS (14)
  1. ETOPOSIDE [Suspect]
     Active Substance: ETOPOSIDE
     Indication: Hodgkin^s disease
     Route: 065
     Dates: start: 2009
  2. CYTARABINE [Suspect]
     Active Substance: CYTARABINE
     Indication: Acute myeloid leukaemia
  3. DOXORUBICIN [Suspect]
     Active Substance: DOXORUBICIN
     Indication: Hodgkin^s disease
     Route: 065
     Dates: start: 2009
  4. FLUDARABINE [Suspect]
     Active Substance: FLUDARABINE PHOSPHATE
     Indication: Acute myeloid leukaemia
     Route: 065
  5. IDARUBICIN [Suspect]
     Active Substance: IDARUBICIN
     Indication: Acute myeloid leukaemia
     Dosage: PART OF THE FLAG-IDA REGIMEN
  6. BLEOMYCIN [Suspect]
     Active Substance: BLEOMYCIN SULFATE
     Indication: Hodgkin^s disease
     Dosage: PART OF THE BEACOPP REGIMENS
     Route: 065
     Dates: start: 2009
  7. CYCLOPHOSPHAMIDE [Suspect]
     Active Substance: CYCLOPHOSPHAMIDE
     Indication: Hodgkin^s disease
     Dosage: PART OF THE BEACOPP REGIMENS
     Route: 065
     Dates: start: 2009
  8. GRANULOCYTE COLONY-STIMULATING FACTOR NOS [Suspect]
     Active Substance: GRANULOCYTE COLONY-STIMULATING FACTOR NOS
     Indication: Acute myeloid leukaemia
  9. MELPHALAN [Suspect]
     Active Substance: MELPHALAN
     Indication: Bone marrow conditioning regimen
     Route: 065
  10. PREDNISONE [Suspect]
     Active Substance: PREDNISONE
     Indication: Hodgkin^s disease
     Dosage: PART OF THE BEACOPP REGIMENS
     Route: 065
     Dates: start: 2009
  11. PROCARBAZINE [Suspect]
     Active Substance: PROCARBAZINE
     Indication: Hodgkin^s disease
     Dosage: PART OF THE BEACOPP REGIMENS
     Route: 065
     Dates: start: 2009
  12. VINCRISTINE [Suspect]
     Active Substance: VINCRISTINE
     Indication: Hodgkin^s disease
     Dosage: PART OF THE BEACOPP REGIMENS
     Route: 065
     Dates: start: 2009
  13. DEFIBROTIDE [Suspect]
     Active Substance: DEFIBROTIDE (BOVINE)
     Indication: Hepatic failure
  14. ETOPOSIDE [Suspect]
     Active Substance: ETOPOSIDE
     Indication: Hodgkin^s disease
     Dosage: PART OF THE BEACOPP REGIMENS
     Route: 065
     Dates: start: 2009

REACTIONS (12)
  - Acute myeloid leukaemia [Unknown]
  - Sepsis [Fatal]
  - Hair colour changes [Unknown]
  - Premature ageing [Unknown]
  - Cardiomyopathy [Unknown]
  - Impaired healing [Unknown]
  - Venoocclusive liver disease [Unknown]
  - Renal failure [Unknown]
  - Off label use [Unknown]
  - Acute hepatic failure [Fatal]
  - Therapeutic product effect incomplete [Unknown]
  - Hair growth abnormal [Unknown]

NARRATIVE: CASE EVENT DATE: 20141201
